APPROVED DRUG PRODUCT: RIBAVIRIN
Active Ingredient: RIBAVIRIN
Strength: 200MG
Dosage Form/Route: CAPSULE;ORAL
Application: A076192 | Product #001
Applicant: CHARTWELL RX SCIENCES LLC
Approved: Apr 6, 2004 | RLD: No | RS: No | Type: DISCN